FAERS Safety Report 6114443-1 (Version None)
Quarter: 2009Q1

REPORT INFORMATION
  Report Type: 
  Country: None (occurrence: None)
  Receive Date: 20090313
  Receipt Date: 20090302
  Transmission Date: 20090719
  Serious: Yes (Other)
  Sender: FDA-Public Use
  Company Number: PHHY2009DE08005

PATIENT
  Sex: Male

DRUGS (4)
  1. DIOVAN [Suspect]
     Route: 048
  2. RASILEZ [Suspect]
     Dosage: 150 MG, UNK
     Route: 048
     Dates: start: 20081001, end: 20090101
  3. RASILEZ [Suspect]
     Dosage: 300 MG, UNK
     Route: 048
     Dates: start: 20090101, end: 20090201
  4. MOXONIDINE [Concomitant]
     Route: 048

REACTIONS (2)
  - BRONCHITIS [None]
  - HYPONATRAEMIA [None]
